FAERS Safety Report 5931502-4 (Version None)
Quarter: 2008Q4

REPORT INFORMATION
  Report Type: 
  Country: None (occurrence: None)
  Receive Date: 20081027
  Receipt Date: 20081022
  Transmission Date: 20090506
  Serious: Yes (Congenital Anomaly)
  Sender: FDA-Public Use
  Company Number: A0748057A

PATIENT
  Sex: Male

DRUGS (1)
  1. PAXIL [Suspect]
     Indication: DEPRESSION
     Dosage: 40MG PER DAY
     Dates: start: 20000101, end: 20060101

REACTIONS (11)
  - BRAIN INJURY [None]
  - CEREBRAL PALSY [None]
  - COMA [None]
  - DEAFNESS [None]
  - DEVELOPMENTAL DELAY [None]
  - DRUG EXPOSURE DURING PREGNANCY [None]
  - EPILEPSY [None]
  - PERIVENTRICULAR LEUKOMALACIA [None]
  - PREMATURE BABY [None]
  - PULMONARY MALFORMATION [None]
  - TUNNEL VISION [None]
